FAERS Safety Report 8545827-X (Version None)
Quarter: 2012Q3

REPORT INFORMATION
  Report Type: 
  Country: None (occurrence: None)
  Receive Date: 20120727
  Receipt Date: 20111110
  Transmission Date: 20120928
  Serious: No
  Sender: FDA-Public Use
  Company Number: US-ASTRAZENECA-2011SE68503

PATIENT
  Sex: Male

DRUGS (6)
  1. SEROQUEL [Suspect]
     Indication: BIPOLAR II DISORDER
     Route: 048
  2. LAMICTAL [Concomitant]
  3. THYROID TAB [Concomitant]
  4. AMBIEN CR [Concomitant]
  5. SEROQUEL [Suspect]
     Route: 048
  6. METOHYL FOLATE [Concomitant]

REACTIONS (3)
  - ABNORMAL BEHAVIOUR [None]
  - SLEEP-RELATED EATING DISORDER [None]
  - SOMNAMBULISM [None]
